FAERS Safety Report 8258729-3 (Version None)
Quarter: 2012Q2

REPORT INFORMATION
  Report Type: 
  Country: None (occurrence: None)
  Receive Date: 20120404
  Receipt Date: 20120404
  Transmission Date: 20120825
  Serious: Yes (Hospitalization)
  Sender: FDA-Public Use
  Company Number: None

PATIENT
  Age: 69 Year
  Sex: Female
  Weight: 54.431 kg

DRUGS (1)
  1. FOSAMAX [Suspect]
     Indication: OSTEOPENIA
     Dosage: 70MG
     Route: 048

REACTIONS (5)
  - BONE GRAFT [None]
  - FRACTURE NONUNION [None]
  - FEMUR FRACTURE [None]
  - ACCIDENT [None]
  - FALL [None]
